FAERS Safety Report 15939277 (Version 1)
Quarter: 2019Q1

REPORT INFORMATION
  Report Type: Other
  Country: None (occurrence: US)
  Receive Date: 20190208
  Receipt Date: 20190208
  Transmission Date: 20190417
  Serious: No
  Sender: FDA-Public Use
  Company Number: US-ASCEND THERAPEUTICS-2062379

PATIENT
  Age: 16 Year
  Sex: Female

DRUGS (3)
  1. MEDROXYPROGESTERONE (MEDROXYPROGESTERONE) [Concomitant]
     Active Substance: MEDROXYPROGESTERONE
  2. ESTROGEL [Suspect]
     Active Substance: ESTRADIOL
  3. ETHINYLESTRADIOL [Suspect]
     Active Substance: ETHINYL ESTRADIOL
     Route: 048

REACTIONS (1)
  - Drug ineffective for unapproved indication [None]
